FAERS Safety Report 9976068 (Version 22)
Quarter: 2018Q1

REPORT INFORMATION
  Report Type: Spontaneous
  Country: US (occurrence: US)
  Receive Date: 20140306
  Receipt Date: 20180117
  Transmission Date: 20180509
  Serious: Yes (Other)
  Sender: FDA-Public Use
  Company Number: US-ASTRAZENECA-2013SE69849

PATIENT
  Age: 80 Year
  Sex: Female
  Weight: 83.9 kg

DRUGS (132)
  1. CRESTOR [Suspect]
     Active Substance: ROSUVASTATIN CALCIUM
     Indication: BLOOD CHOLESTEROL ABNORMAL
     Route: 048
     Dates: start: 20131115
  2. CRESTOR [Suspect]
     Active Substance: ROSUVASTATIN CALCIUM
     Indication: HYPERLIPIDAEMIA
     Route: 048
     Dates: start: 20131115
  3. CRESTOR [Suspect]
     Active Substance: ROSUVASTATIN CALCIUM
     Indication: HYPERLIPIDAEMIA
     Route: 048
  4. METOPROLOL SUCCINATE. [Interacting]
     Active Substance: METOPROLOL SUCCINATE
     Indication: HEART RATE ABNORMAL
     Dosage: 25 MG, DAILY (PAR PHARMACEUTICAL) (NON AZ PRODUCT)
     Route: 048
  5. METOPROLOL SUCCINATE. [Interacting]
     Active Substance: METOPROLOL SUCCINATE
     Indication: BLOOD PRESSURE SYSTOLIC ABNORMAL
     Dosage: 25 MG, DAILY (PAR PHARMACEUTICAL) (NON AZ PRODUCT)
     Route: 048
  6. METOPROLOL SUCCINATE. [Interacting]
     Active Substance: METOPROLOL SUCCINATE
     Indication: BLOOD PRESSURE SYSTOLIC ABNORMAL
     Dosage: 25 MG, DAILY (PAR PHARMACEUTICAL) (NON AZ PRODUCT)
     Route: 048
  7. METOPROLOL SUCCINATE. [Interacting]
     Active Substance: METOPROLOL SUCCINATE
     Indication: CARDIAC DISORDER
     Dosage: 25 MG, DAILY (PAR PHARMACEUTICAL) (NON AZ PRODUCT)
     Route: 048
  8. METOPROLOL SUCCINATE. [Interacting]
     Active Substance: METOPROLOL SUCCINATE
     Indication: CARDIAC FAILURE
     Dosage: 25 MG, DAILY (PAR PHARMACEUTICAL) (NON AZ PRODUCT)
     Route: 048
  9. METOPROLOL SUCCINATE. [Interacting]
     Active Substance: METOPROLOL SUCCINATE
     Indication: HYPERTROPHIC CARDIOMYOPATHY
     Dosage: 25 MG, DAILY (PAR PHARMACEUTICAL) (NON AZ PRODUCT)
     Route: 048
     Dates: start: 201507
  10. VERAPAMIL [Interacting]
     Active Substance: VERAPAMIL HYDROCHLORIDE
     Indication: HEART RATE ABNORMAL
     Route: 048
  11. LASIX [Concomitant]
     Active Substance: FUROSEMIDE
     Indication: DIURETIC THERAPY
     Route: 048
     Dates: start: 2010
  12. LASIX [Concomitant]
     Active Substance: FUROSEMIDE
     Indication: FLUID RETENTION
     Dosage: 20 MG , ONE AND ONE HALF TABLET, 3 DAYS PER WEEK
     Route: 048
  13. LASIX [Concomitant]
     Active Substance: FUROSEMIDE
     Indication: OEDEMA PERIPHERAL
     Dosage: 20 MG , ONE AND ONE HALF TABLET, 3 DAYS PER WEEK
     Route: 048
  14. LASIX [Concomitant]
     Active Substance: FUROSEMIDE
     Indication: DIURETIC THERAPY
     Dosage: 20 MG , ONE AND ONE HALF TABLET, 3 DAYS PER WEEK
     Route: 048
  15. LASIX [Concomitant]
     Active Substance: FUROSEMIDE
     Indication: FLUID RETENTION
     Route: 048
     Dates: start: 2010
  16. LASIX [Concomitant]
     Active Substance: FUROSEMIDE
     Indication: FLUID RETENTION
     Route: 048
  17. EVISTA [Concomitant]
     Active Substance: RALOXIFENE HYDROCHLORIDE
     Indication: OSTEOPOROSIS
     Route: 048
     Dates: start: 2010
  18. VITAMIN D [Concomitant]
     Active Substance: CHOLECALCIFEROL
     Indication: BONE DISORDER
  19. CRESTOR [Suspect]
     Active Substance: ROSUVASTATIN CALCIUM
     Indication: BLOOD TRIGLYCERIDES INCREASED
     Route: 048
     Dates: start: 20131115
  20. CRESTOR [Suspect]
     Active Substance: ROSUVASTATIN CALCIUM
     Indication: HYPERLIPIDAEMIA
     Dosage: 5 MG FOUR TIMES A WEEK
     Route: 048
     Dates: start: 201311
  21. CRESTOR [Suspect]
     Active Substance: ROSUVASTATIN CALCIUM
     Indication: LIPIDS ABNORMAL
     Dosage: 5 MG FOUR TIMES A WEEK
     Route: 048
     Dates: start: 201311
  22. CRESTOR [Suspect]
     Active Substance: ROSUVASTATIN CALCIUM
     Indication: HYPERLIPIDAEMIA
     Dosage: 5 MG, FOUR TIMES PER WEEK
     Route: 048
  23. METOPROLOL SUCCINATE. [Interacting]
     Active Substance: METOPROLOL SUCCINATE
     Indication: CARDIAC DISORDER
     Dosage: 25 MG, DAILY (PAR PHARMACEUTICAL) (NON AZ PRODUCT)
     Route: 048
     Dates: start: 2013
  24. METOPROLOL SUCCINATE. [Interacting]
     Active Substance: METOPROLOL SUCCINATE
     Indication: CARDIAC DISORDER
     Dosage: 25 MG, DAILY (PAR PHARMACEUTICAL) (NON AZ PRODUCT)
     Route: 048
  25. METOPROLOL SUCCINATE. [Interacting]
     Active Substance: METOPROLOL SUCCINATE
     Indication: BLOOD PRESSURE ABNORMAL
     Dosage: 25 MG, DAILY (PAR PHARMACEUTICAL) (NON AZ PRODUCT)
     Route: 048
     Dates: start: 20130823
  26. METOPROLOL SUCCINATE. [Interacting]
     Active Substance: METOPROLOL SUCCINATE
     Indication: HYPERTROPHIC CARDIOMYOPATHY
     Dosage: 25 MG, DAILY (PAR PHARMACEUTICAL) (NON AZ PRODUCT)
     Route: 048
  27. METOPROLOL SUCCINATE. [Interacting]
     Active Substance: METOPROLOL SUCCINATE
     Indication: CARDIAC DISORDER
     Dosage: 25 MG, DAILY (PAR PHARMACEUTICAL) (NON AZ PRODUCT)
     Route: 048
  28. METOPROLOL SUCCINATE. [Interacting]
     Active Substance: METOPROLOL SUCCINATE
     Indication: BLOOD PRESSURE ABNORMAL
     Dosage: 25 MG, DAILY (PAR PHARMACEUTICAL) (NON AZ PRODUCT)
     Route: 048
  29. METOPROLOL SUCCINATE. [Interacting]
     Active Substance: METOPROLOL SUCCINATE
     Indication: BLOOD PRESSURE ABNORMAL
     Dosage: 50 MG, DAILY (PAR PHARMACEUTICAL) (NON AZ PRODUCT)
     Route: 048
     Dates: start: 201501, end: 201506
  30. METOPROLOL SUCCINATE. [Interacting]
     Active Substance: METOPROLOL SUCCINATE
     Indication: HYPERTROPHIC CARDIOMYOPATHY
     Dosage: 25 MG, DAILY (PAR PHARMACEUTICAL) (NON AZ PRODUCT)
     Route: 048
     Dates: start: 201504
  31. METOPROLOL SUCCINATE. [Interacting]
     Active Substance: METOPROLOL SUCCINATE
     Indication: HEART RATE ABNORMAL
     Dosage: 25 MG, DAILY (PAR PHARMACEUTICAL) (NON AZ PRODUCT)
     Route: 048
     Dates: start: 201504
  32. METOPROLOL SUCCINATE. [Interacting]
     Active Substance: METOPROLOL SUCCINATE
     Indication: CARDIAC DISORDER
     Dosage: 25 MG, DAILY (PAR PHARMACEUTICAL) (NON AZ PRODUCT)
     Route: 048
     Dates: start: 201504
  33. METOPROLOL SUCCINATE. [Interacting]
     Active Substance: METOPROLOL SUCCINATE
     Indication: BLOOD PRESSURE ABNORMAL
     Dosage: 25 MG, DAILY (PAR PHARMACEUTICAL) (NON AZ PRODUCT)
     Route: 048
     Dates: start: 201507
  34. VERAPAMIL [Interacting]
     Active Substance: VERAPAMIL HYDROCHLORIDE
     Indication: BLOOD PRESSURE ABNORMAL
     Route: 048
     Dates: start: 2010
  35. LASIX [Concomitant]
     Active Substance: FUROSEMIDE
     Indication: FLUID RETENTION
     Route: 048
     Dates: start: 2010
  36. LASIX [Concomitant]
     Active Substance: FUROSEMIDE
     Indication: OEDEMA PERIPHERAL
     Route: 048
     Dates: start: 2010
  37. LASIX [Concomitant]
     Active Substance: FUROSEMIDE
     Indication: FLUID RETENTION
     Dosage: DAILY AS NEEDED
     Route: 048
  38. LASIX [Concomitant]
     Active Substance: FUROSEMIDE
     Indication: DIURETIC THERAPY
     Dosage: DAILY AS NEEDED
     Route: 048
  39. VITAMIN D [Concomitant]
     Active Substance: CHOLECALCIFEROL
     Indication: VITAMIN D DEFICIENCY
  40. VITAMIN D [Concomitant]
     Active Substance: CHOLECALCIFEROL
     Indication: VITAMIN D DEFICIENCY
     Route: 048
     Dates: start: 2014
  41. ZANTAC [Concomitant]
     Active Substance: RANITIDINE HYDROCHLORIDE
     Indication: DYSPEPSIA
     Dosage: 75.0MG AS REQUIRED
     Route: 048
     Dates: start: 2006
  42. ADVIL [Concomitant]
     Active Substance: IBUPROFEN
     Indication: TOOTH DISORDER
     Dosage: 200.0MG AS REQUIRED
     Route: 048
     Dates: start: 2015
  43. CRESTOR [Suspect]
     Active Substance: ROSUVASTATIN CALCIUM
     Indication: LOW DENSITY LIPOPROTEIN INCREASED
     Dosage: 5 MG FOUR TIMES A WEEK
     Route: 048
     Dates: start: 201311
  44. CRESTOR [Suspect]
     Active Substance: ROSUVASTATIN CALCIUM
     Indication: LIPIDS ABNORMAL
     Dosage: 5 MG FOUR TIMES A WEEK
     Route: 048
     Dates: start: 201410
  45. CRESTOR [Suspect]
     Active Substance: ROSUVASTATIN CALCIUM
     Indication: BLOOD CHOLESTEROL ABNORMAL
     Dosage: 5 MG, FOUR TIMES PER WEEK
     Route: 048
  46. METOPROLOL SUCCINATE. [Interacting]
     Active Substance: METOPROLOL SUCCINATE
     Indication: CARDIAC FAILURE
     Dosage: 25 MG, DAILY (PAR PHARMACEUTICAL) (NON AZ PRODUCT)
     Route: 048
     Dates: start: 2013
  47. METOPROLOL SUCCINATE. [Interacting]
     Active Substance: METOPROLOL SUCCINATE
     Indication: AORTIC STENOSIS
     Dosage: 25 MG, DAILY (PAR PHARMACEUTICAL) (NON AZ PRODUCT)
     Route: 048
     Dates: start: 20130823
  48. METOPROLOL SUCCINATE. [Interacting]
     Active Substance: METOPROLOL SUCCINATE
     Indication: BLOOD PRESSURE SYSTOLIC ABNORMAL
     Dosage: 25 MG, DAILY (PAR PHARMACEUTICAL) (NON AZ PRODUCT)
     Route: 048
     Dates: start: 20130823
  49. METOPROLOL SUCCINATE. [Interacting]
     Active Substance: METOPROLOL SUCCINATE
     Indication: CARDIAC FAILURE
     Dosage: 25 MG, DAILY (PAR PHARMACEUTICAL) (NON AZ PRODUCT)
     Route: 048
     Dates: start: 20130823
  50. METOPROLOL SUCCINATE. [Interacting]
     Active Substance: METOPROLOL SUCCINATE
     Indication: AORTIC STENOSIS
     Dosage: 25 MG, DAILY (PAR PHARMACEUTICAL) (NON AZ PRODUCT)
     Route: 048
  51. METOPROLOL SUCCINATE. [Interacting]
     Active Substance: METOPROLOL SUCCINATE
     Indication: HEART RATE ABNORMAL
     Dosage: 50 MG, DAILY (PAR PHARMACEUTICAL) (NON AZ PRODUCT)
     Route: 048
     Dates: start: 201501, end: 201506
  52. METOPROLOL SUCCINATE. [Interacting]
     Active Substance: METOPROLOL SUCCINATE
     Indication: AORTIC STENOSIS
     Dosage: 25 MG, DAILY (PAR PHARMACEUTICAL) (NON AZ PRODUCT)
     Route: 048
     Dates: start: 201504
  53. METOPROLOL SUCCINATE. [Interacting]
     Active Substance: METOPROLOL SUCCINATE
     Indication: BLOOD PRESSURE SYSTOLIC ABNORMAL
     Dosage: 25 MG, DAILY (PAR PHARMACEUTICAL) (NON AZ PRODUCT)
     Route: 048
     Dates: start: 201504
  54. METOPROLOL SUCCINATE. [Interacting]
     Active Substance: METOPROLOL SUCCINATE
     Indication: CARDIAC FAILURE
     Dosage: 25 MG, DAILY (PAR PHARMACEUTICAL) (NON AZ PRODUCT)
     Route: 048
     Dates: start: 201504
  55. METOPROLOL SUCCINATE. [Interacting]
     Active Substance: METOPROLOL SUCCINATE
     Indication: BLOOD PRESSURE ABNORMAL
     Dosage: 25 MG, DAILY (PAR PHARMACEUTICAL) (NON AZ PRODUCT)
     Route: 048
     Dates: start: 201504
  56. METOPROLOL SUCCINATE. [Interacting]
     Active Substance: METOPROLOL SUCCINATE
     Indication: AORTIC STENOSIS
     Dosage: 25 MG, DAILY (PAR PHARMACEUTICAL) (NON AZ PRODUCT)
     Route: 048
     Dates: start: 201507
  57. ASPIRIN. [Concomitant]
     Active Substance: ASPIRIN
     Indication: ANTICOAGULANT THERAPY
     Dosage: 81.0MG UNKNOWN
     Route: 048
  58. VITAMIN D [Concomitant]
     Active Substance: CHOLECALCIFEROL
     Indication: VITAMIN D DEFICIENCY
  59. CRESTOR [Suspect]
     Active Substance: ROSUVASTATIN CALCIUM
     Indication: BLOOD TRIGLYCERIDES INCREASED
     Route: 048
  60. CRESTOR [Suspect]
     Active Substance: ROSUVASTATIN CALCIUM
     Indication: BLOOD CHOLESTEROL ABNORMAL
     Route: 048
  61. CRESTOR [Suspect]
     Active Substance: ROSUVASTATIN CALCIUM
     Indication: BLOOD TRIGLYCERIDES INCREASED
     Dosage: 5 MG FOUR TIMES A WEEK
     Route: 048
     Dates: start: 201311
  62. CRESTOR [Suspect]
     Active Substance: ROSUVASTATIN CALCIUM
     Indication: BLOOD TRIGLYCERIDES INCREASED
     Dosage: 5 MG, FOUR TIMES PER WEEK
     Route: 048
  63. METOPROLOL SUCCINATE. [Interacting]
     Active Substance: METOPROLOL SUCCINATE
     Indication: BLOOD PRESSURE SYSTOLIC ABNORMAL
     Dosage: 25 MG, DAILY (PAR PHARMACEUTICAL) (NON AZ PRODUCT)
     Route: 048
     Dates: start: 2013
  64. METOPROLOL SUCCINATE. [Interacting]
     Active Substance: METOPROLOL SUCCINATE
     Indication: BLOOD PRESSURE ABNORMAL
     Dosage: 25 MG, DAILY (PAR PHARMACEUTICAL) (NON AZ PRODUCT)
     Route: 048
     Dates: start: 2013
  65. METOPROLOL SUCCINATE. [Interacting]
     Active Substance: METOPROLOL SUCCINATE
     Indication: HYPERTROPHIC CARDIOMYOPATHY
     Dosage: 25 MG, DAILY (PAR PHARMACEUTICAL) (NON AZ PRODUCT)
     Route: 048
  66. METOPROLOL SUCCINATE. [Interacting]
     Active Substance: METOPROLOL SUCCINATE
     Indication: BLOOD PRESSURE SYSTOLIC ABNORMAL
     Dosage: 25 MG, DAILY (PAR PHARMACEUTICAL) (NON AZ PRODUCT)
     Route: 048
  67. METOPROLOL SUCCINATE. [Interacting]
     Active Substance: METOPROLOL SUCCINATE
     Indication: CARDIAC FAILURE
     Dosage: 50 MG, DAILY (PAR PHARMACEUTICAL) (NON AZ PRODUCT)
     Route: 048
     Dates: start: 201501, end: 201506
  68. METOPROLOL SUCCINATE. [Interacting]
     Active Substance: METOPROLOL SUCCINATE
     Indication: HEART RATE ABNORMAL
     Dosage: 25 MG, DAILY (PAR PHARMACEUTICAL) (NON AZ PRODUCT)
     Route: 048
     Dates: start: 201507
  69. LIPITOR [Suspect]
     Active Substance: ATORVASTATIN CALCIUM
     Route: 065
     Dates: end: 20131115
  70. VERAPAMIL [Interacting]
     Active Substance: VERAPAMIL HYDROCHLORIDE
     Indication: HYPERTROPHIC CARDIOMYOPATHY
     Route: 048
  71. VERAPAMIL [Interacting]
     Active Substance: VERAPAMIL HYDROCHLORIDE
     Indication: AORTIC STENOSIS
     Route: 048
  72. LASIX [Concomitant]
     Active Substance: FUROSEMIDE
     Indication: OEDEMA PERIPHERAL
     Route: 048
  73. VITAMIN D [Concomitant]
     Active Substance: CHOLECALCIFEROL
     Indication: BLOOD CALCIUM ABNORMAL
  74. CALCIUM [Concomitant]
     Active Substance: CALCIUM
  75. CRESTOR [Suspect]
     Active Substance: ROSUVASTATIN CALCIUM
     Indication: LOW DENSITY LIPOPROTEIN INCREASED
     Route: 048
     Dates: start: 20131115
  76. CRESTOR [Suspect]
     Active Substance: ROSUVASTATIN CALCIUM
     Indication: LOW DENSITY LIPOPROTEIN INCREASED
     Route: 048
  77. CRESTOR [Suspect]
     Active Substance: ROSUVASTATIN CALCIUM
     Indication: LIPIDS ABNORMAL
     Route: 048
  78. CRESTOR [Suspect]
     Active Substance: ROSUVASTATIN CALCIUM
     Indication: BLOOD TRIGLYCERIDES INCREASED
     Dosage: 5 MG FOUR TIMES A WEEK
     Route: 048
     Dates: start: 201410
  79. CRESTOR [Suspect]
     Active Substance: ROSUVASTATIN CALCIUM
     Indication: BLOOD CHOLESTEROL ABNORMAL
     Dosage: 5 MG FOUR TIMES A WEEK
     Route: 048
     Dates: start: 201410
  80. METOPROLOL SUCCINATE. [Interacting]
     Active Substance: METOPROLOL SUCCINATE
     Indication: HEART RATE ABNORMAL
     Dosage: 25 MG, DAILY (PAR PHARMACEUTICAL) (NON AZ PRODUCT)
     Route: 048
     Dates: start: 2013
  81. METOPROLOL SUCCINATE. [Interacting]
     Active Substance: METOPROLOL SUCCINATE
     Indication: CARDIAC FAILURE
     Dosage: 25 MG, DAILY (PAR PHARMACEUTICAL) (NON AZ PRODUCT)
     Route: 048
  82. METOPROLOL SUCCINATE. [Interacting]
     Active Substance: METOPROLOL SUCCINATE
     Indication: HYPERTROPHIC CARDIOMYOPATHY
     Dosage: 25 MG, DAILY (PAR PHARMACEUTICAL) (NON AZ PRODUCT)
     Route: 048
  83. METOPROLOL SUCCINATE. [Interacting]
     Active Substance: METOPROLOL SUCCINATE
     Indication: HYPERTROPHIC CARDIOMYOPATHY
     Dosage: 50 MG, DAILY (PAR PHARMACEUTICAL) (NON AZ PRODUCT)
     Route: 048
     Dates: start: 201501, end: 201506
  84. METOPROLOL SUCCINATE. [Interacting]
     Active Substance: METOPROLOL SUCCINATE
     Indication: BLOOD PRESSURE SYSTOLIC ABNORMAL
     Dosage: 25 MG, DAILY (PAR PHARMACEUTICAL) (NON AZ PRODUCT)
     Route: 048
     Dates: start: 201507
  85. VERAPAMIL [Interacting]
     Active Substance: VERAPAMIL HYDROCHLORIDE
     Indication: HYPERTROPHIC CARDIOMYOPATHY
     Route: 048
     Dates: start: 2010
  86. LASIX [Concomitant]
     Active Substance: FUROSEMIDE
     Indication: FLUID RETENTION
     Route: 048
  87. EVISTA [Concomitant]
     Active Substance: RALOXIFENE HYDROCHLORIDE
     Indication: OSTEOPOROSIS
     Route: 048
     Dates: start: 2006
  88. VITAMIN D [Concomitant]
     Active Substance: CHOLECALCIFEROL
     Indication: BONE DISORDER
     Route: 048
     Dates: start: 2014
  89. CRESTOR [Suspect]
     Active Substance: ROSUVASTATIN CALCIUM
     Indication: LOW DENSITY LIPOPROTEIN INCREASED
     Dosage: 5 MG FOUR TIMES A WEEK
     Route: 048
     Dates: start: 201410
  90. CRESTOR [Suspect]
     Active Substance: ROSUVASTATIN CALCIUM
     Indication: LIPIDS ABNORMAL
     Dosage: 5 MG, FOUR TIMES PER WEEK
     Route: 048
  91. METOPROLOL SUCCINATE. [Interacting]
     Active Substance: METOPROLOL SUCCINATE
     Indication: AORTIC STENOSIS
     Dosage: 25 MG, DAILY (PAR PHARMACEUTICAL) (NON AZ PRODUCT)
     Route: 048
     Dates: start: 2013
  92. METOPROLOL SUCCINATE. [Interacting]
     Active Substance: METOPROLOL SUCCINATE
     Indication: HYPERTROPHIC CARDIOMYOPATHY
     Dosage: 25 MG, DAILY (PAR PHARMACEUTICAL) (NON AZ PRODUCT)
     Route: 048
     Dates: start: 20130823
  93. METOPROLOL SUCCINATE. [Interacting]
     Active Substance: METOPROLOL SUCCINATE
     Indication: HEART RATE ABNORMAL
     Dosage: 25 MG, DAILY (PAR PHARMACEUTICAL) (NON AZ PRODUCT)
     Route: 048
  94. METOPROLOL SUCCINATE. [Interacting]
     Active Substance: METOPROLOL SUCCINATE
     Indication: BLOOD PRESSURE ABNORMAL
     Dosage: 25 MG, DAILY (PAR PHARMACEUTICAL) (NON AZ PRODUCT)
     Route: 048
  95. METOPROLOL SUCCINATE. [Interacting]
     Active Substance: METOPROLOL SUCCINATE
     Indication: HEART RATE ABNORMAL
     Dosage: 25 MG, DAILY (PAR PHARMACEUTICAL) (NON AZ PRODUCT)
     Route: 048
  96. METOPROLOL SUCCINATE. [Interacting]
     Active Substance: METOPROLOL SUCCINATE
     Indication: BLOOD PRESSURE SYSTOLIC ABNORMAL
     Dosage: 50 MG, DAILY (PAR PHARMACEUTICAL) (NON AZ PRODUCT)
     Route: 048
     Dates: start: 201501, end: 201506
  97. METOPROLOL SUCCINATE. [Interacting]
     Active Substance: METOPROLOL SUCCINATE
     Indication: CARDIAC DISORDER
     Dosage: 25 MG, DAILY (PAR PHARMACEUTICAL) (NON AZ PRODUCT)
     Route: 048
     Dates: start: 201507
  98. METOPROLOL SUCCINATE. [Interacting]
     Active Substance: METOPROLOL SUCCINATE
     Indication: CARDIAC FAILURE
     Dosage: 25 MG, DAILY (PAR PHARMACEUTICAL) (NON AZ PRODUCT)
     Route: 048
     Dates: start: 201507
  99. METOPROLOL. [Suspect]
     Active Substance: METOPROLOL
     Route: 065
  100. LASIX [Concomitant]
     Active Substance: FUROSEMIDE
     Indication: FLUID RETENTION
     Dosage: 20MG, 4 DAYS PER WEEK
     Route: 048
  101. LASIX [Concomitant]
     Active Substance: FUROSEMIDE
     Indication: OEDEMA PERIPHERAL
     Route: 048
     Dates: start: 2010
  102. LASIX [Concomitant]
     Active Substance: FUROSEMIDE
     Indication: OEDEMA PERIPHERAL
     Dosage: DAILY AS NEEDED
     Route: 048
  103. LASIX [Concomitant]
     Active Substance: FUROSEMIDE
     Indication: DIURETIC THERAPY
     Route: 048
  104. ASPIRIN. [Concomitant]
     Active Substance: ASPIRIN
     Indication: ANTICOAGULANT THERAPY
     Dosage: 162.0MG UNKNOWN
     Route: 048
     Dates: start: 2010
  105. ADVIL [Concomitant]
     Active Substance: IBUPROFEN
     Indication: SPINAL OSTEOARTHRITIS
     Dosage: 200.0MG AS REQUIRED
     Route: 048
     Dates: start: 2015
  106. CRESTOR [Suspect]
     Active Substance: ROSUVASTATIN CALCIUM
     Indication: LIPIDS ABNORMAL
     Route: 048
     Dates: start: 20131115
  107. CRESTOR [Suspect]
     Active Substance: ROSUVASTATIN CALCIUM
     Indication: HYPERLIPIDAEMIA
     Dosage: 5 MG FOUR TIMES A WEEK
     Route: 048
     Dates: start: 201410
  108. METOPROLOL SUCCINATE. [Interacting]
     Active Substance: METOPROLOL SUCCINATE
     Indication: HYPERTROPHIC CARDIOMYOPATHY
     Dosage: 25 MG, DAILY (PAR PHARMACEUTICAL) (NON AZ PRODUCT)
     Route: 048
     Dates: start: 2013
  109. METOPROLOL SUCCINATE. [Interacting]
     Active Substance: METOPROLOL SUCCINATE
     Indication: AORTIC STENOSIS
     Dosage: 25 MG, DAILY (PAR PHARMACEUTICAL) (NON AZ PRODUCT)
     Route: 048
  110. METOPROLOL SUCCINATE. [Interacting]
     Active Substance: METOPROLOL SUCCINATE
     Indication: CARDIAC DISORDER
     Dosage: 25 MG, DAILY (PAR PHARMACEUTICAL) (NON AZ PRODUCT)
     Route: 048
     Dates: start: 20130823
  111. METOPROLOL SUCCINATE. [Interacting]
     Active Substance: METOPROLOL SUCCINATE
     Indication: CARDIAC FAILURE
     Dosage: 25 MG, DAILY (PAR PHARMACEUTICAL) (NON AZ PRODUCT)
     Route: 048
  112. METOPROLOL SUCCINATE. [Interacting]
     Active Substance: METOPROLOL SUCCINATE
     Indication: AORTIC STENOSIS
     Dosage: 50 MG, DAILY (PAR PHARMACEUTICAL) (NON AZ PRODUCT)
     Route: 048
     Dates: start: 201501, end: 201506
  113. VERAPAMIL [Interacting]
     Active Substance: VERAPAMIL HYDROCHLORIDE
     Indication: BLOOD PRESSURE ABNORMAL
     Route: 048
  114. VERAPAMIL [Interacting]
     Active Substance: VERAPAMIL HYDROCHLORIDE
     Indication: AORTIC STENOSIS
     Route: 048
     Dates: start: 2010
  115. VERAPAMIL [Interacting]
     Active Substance: VERAPAMIL HYDROCHLORIDE
     Indication: HEART RATE ABNORMAL
     Route: 048
     Dates: start: 2010
  116. LASIX [Concomitant]
     Active Substance: FUROSEMIDE
     Indication: DIURETIC THERAPY
     Route: 048
  117. ASPIRIN. [Concomitant]
     Active Substance: ASPIRIN
     Indication: ANTICOAGULANT THERAPY
     Dosage: 160 MG, DAILY UNKNOWN
     Route: 048
     Dates: start: 2010
  118. VITAMIN D [Concomitant]
     Active Substance: CHOLECALCIFEROL
     Indication: BLOOD CALCIUM ABNORMAL
  119. VITAMIN D [Concomitant]
     Active Substance: CHOLECALCIFEROL
     Indication: BLOOD CALCIUM ABNORMAL
     Route: 048
     Dates: start: 2014
  120. CRESTOR [Suspect]
     Active Substance: ROSUVASTATIN CALCIUM
     Indication: BLOOD CHOLESTEROL ABNORMAL
     Dosage: 5 MG FOUR TIMES A WEEK
     Route: 048
     Dates: start: 201311
  121. CRESTOR [Suspect]
     Active Substance: ROSUVASTATIN CALCIUM
     Indication: LOW DENSITY LIPOPROTEIN INCREASED
     Dosage: 5 MG, FOUR TIMES PER WEEK
     Route: 048
  122. METOPROLOL SUCCINATE. [Interacting]
     Active Substance: METOPROLOL SUCCINATE
     Indication: BLOOD PRESSURE ABNORMAL
     Dosage: 25 MG, DAILY (PAR PHARMACEUTICAL) (NON AZ PRODUCT)
     Route: 048
  123. METOPROLOL SUCCINATE. [Interacting]
     Active Substance: METOPROLOL SUCCINATE
     Indication: HEART RATE ABNORMAL
     Dosage: 25 MG, DAILY (PAR PHARMACEUTICAL) (NON AZ PRODUCT)
     Route: 048
     Dates: start: 20130823
  124. METOPROLOL SUCCINATE. [Interacting]
     Active Substance: METOPROLOL SUCCINATE
     Indication: AORTIC STENOSIS
     Dosage: 25 MG, DAILY (PAR PHARMACEUTICAL) (NON AZ PRODUCT)
     Route: 048
  125. METOPROLOL SUCCINATE. [Interacting]
     Active Substance: METOPROLOL SUCCINATE
     Indication: CARDIAC DISORDER
     Dosage: 50 MG, DAILY (PAR PHARMACEUTICAL) (NON AZ PRODUCT)
     Route: 048
     Dates: start: 201501, end: 201506
  126. LASIX [Concomitant]
     Active Substance: FUROSEMIDE
     Indication: OEDEMA PERIPHERAL
     Dosage: 20MG, 4 DAYS PER WEEK
     Route: 048
  127. LASIX [Concomitant]
     Active Substance: FUROSEMIDE
     Indication: DIURETIC THERAPY
     Dosage: 20MG, 4 DAYS PER WEEK
     Route: 048
  128. LASIX [Concomitant]
     Active Substance: FUROSEMIDE
     Indication: DIURETIC THERAPY
     Route: 048
     Dates: start: 2010
  129. LASIX [Concomitant]
     Active Substance: FUROSEMIDE
     Indication: OEDEMA PERIPHERAL
     Route: 048
  130. ASPIRIN. [Concomitant]
     Active Substance: ASPIRIN
     Indication: ANTICOAGULANT THERAPY
     Dosage: 160 MG, DAILY UNKNOWN
     Route: 048
     Dates: start: 2012
  131. VITAMIN D [Concomitant]
     Active Substance: CHOLECALCIFEROL
     Indication: BONE DISORDER
  132. ZANTAC [Concomitant]
     Active Substance: RANITIDINE HYDROCHLORIDE
     Indication: OESOPHAGEAL DISORDER
     Dosage: 75.0MG AS REQUIRED
     Route: 048
     Dates: start: 2006

REACTIONS (50)
  - Bradycardia [Recovered/Resolved]
  - Toothache [Unknown]
  - Peripheral swelling [Not Recovered/Not Resolved]
  - Off label use [Unknown]
  - Atrial flutter [Unknown]
  - Overweight [Unknown]
  - Stress [Not Recovered/Not Resolved]
  - Pain [Unknown]
  - Fatigue [Unknown]
  - Chest pain [Unknown]
  - Nervousness [Not Recovered/Not Resolved]
  - Aortic stenosis [Not Recovered/Not Resolved]
  - Muscle spasms [Not Recovered/Not Resolved]
  - Memory impairment [Not Recovered/Not Resolved]
  - Intentional dose omission [Unknown]
  - Cardiac failure congestive [Not Recovered/Not Resolved]
  - Back pain [Not Recovered/Not Resolved]
  - Throat irritation [Not Recovered/Not Resolved]
  - Diarrhoea [Recovered/Resolved]
  - Hypersensitivity [Unknown]
  - Intentional product misuse [Unknown]
  - Intentional product use issue [Unknown]
  - Loss of personal independence in daily activities [Unknown]
  - Wheezing [Recovering/Resolving]
  - Dry eye [Unknown]
  - Neuropathy peripheral [Unknown]
  - Low density lipoprotein increased [Unknown]
  - Headache [Not Recovered/Not Resolved]
  - Drug interaction [Unknown]
  - Asthma [Unknown]
  - Malaise [Not Recovered/Not Resolved]
  - Blood creatine phosphokinase increased [Unknown]
  - Inappropriate schedule of drug administration [Not Recovered/Not Resolved]
  - Blood pressure systolic increased [Unknown]
  - Dyspnoea [Not Recovered/Not Resolved]
  - Tracheobronchitis viral [Recovering/Resolving]
  - Productive cough [Not Recovered/Not Resolved]
  - Musculoskeletal disorder [Unknown]
  - Thirst [Unknown]
  - Product use issue [Unknown]
  - Macular degeneration [Unknown]
  - Cardiac disorder [Unknown]
  - Myocardial necrosis marker increased [Unknown]
  - Oesophageal pain [Not Recovered/Not Resolved]
  - Arthritis [Not Recovered/Not Resolved]
  - Tooth disorder [Not Recovered/Not Resolved]
  - Confusional state [Unknown]
  - Dysphonia [Not Recovered/Not Resolved]
  - Fall [Unknown]
  - Blood glucose increased [Unknown]

NARRATIVE: CASE EVENT DATE: 2013
